FAERS Safety Report 9243305 (Version 2)
Quarter: 2013Q2

REPORT INFORMATION
  Report Type: Spontaneous
  Country: US (occurrence: US)
  Receive Date: 20130419
  Receipt Date: 20130605
  Transmission Date: 20140414
  Serious: Yes (Other)
  Sender: FDA-Public Use
  Company Number: US-SANOFI-AVENTIS-2013SA038854

PATIENT
  Age: 84 Year
  Sex: Female
  Weight: 52.61 kg

DRUGS (1)
  1. MULTAQ [Suspect]
     Indication: ATRIAL FIBRILLATION
     Dates: start: 2010

REACTIONS (5)
  - Renal neoplasm [Not Recovered/Not Resolved]
  - Renal failure [Not Recovered/Not Resolved]
  - Cystitis [Not Recovered/Not Resolved]
  - Skin cancer [Not Recovered/Not Resolved]
  - Tooth disorder [Unknown]
